FAERS Safety Report 15754497 (Version 1)
Quarter: 2018Q4

REPORT INFORMATION
  Report Type: Spontaneous
  Country: US (occurrence: US)
  Receive Date: 20181224
  Receipt Date: 20181224
  Transmission Date: 20190205
  Serious: No
  Sender: FDA-Public Use
  Company Number: US-TEVA-2018-US-984129

PATIENT
  Sex: Female

DRUGS (1)
  1. AMLODIPINE AND VALSARTAN TABLETS [Suspect]
     Active Substance: AMLODIPINE\VALSARTAN
     Dosage: AMLODIPINE 5 MG+ VALSARTAN 320 MG
     Route: 065

REACTIONS (2)
  - Blood disorder [Unknown]
  - Recalled product administered [Unknown]
